FAERS Safety Report 4692493-X (Version None)
Quarter: 2005Q2

REPORT INFORMATION
  Report Type: 
  Country: None (occurrence: None)
  Receive Date: 20050613
  Receipt Date: 20050406
  Transmission Date: 20051028
  Serious: No
  Sender: FDA-Public Use
  Company Number: 2005-00730

PATIENT
  Age: 63 Year
  Sex: Female

DRUGS (6)
  1. VELCADE [Suspect]
     Indication: MULTIPLE MYELOMA
     Dosage: 1.00 MG/M2, 2/WEEK, INTRAVENOUS
     Route: 042
     Dates: start: 20050328, end: 20050404
  2. TOPROL-XL [Concomitant]
  3. LEVOTHYROXINE SODIUM [Concomitant]
  4. PREMARIN [Concomitant]
  5. PROVERA [Concomitant]
  6. ZYRTEC [Concomitant]

REACTIONS (4)
  - HEADACHE [None]
  - INJECTION SITE ERYTHEMA [None]
  - INJECTION SITE SWELLING [None]
  - PYREXIA [None]
